FAERS Safety Report 4342389-8 (Version None)
Quarter: 2004Q2

REPORT INFORMATION
  Report Type: 
  Country: None (occurrence: None)
  Receive Date: 20040420
  Receipt Date: 20040420
  Transmission Date: 20050107
  Serious: Yes (Death)
  Sender: FDA-Public Use
  Company Number: None

PATIENT
  Age: 50 Year
  Sex: Female
  Weight: 72.5755 kg

DRUGS (3)
  1. LEXAPRO [Suspect]
     Indication: BIPOLAR I DISORDER
     Dosage: LEXAPRO 15 QD, OVER 1 YEAR
  2. SEROQUEL [Suspect]
  3. CARBAMAZEPINE [Suspect]
     Dosage: CARBAMAZEPINE 800 QD

REACTIONS (2)
  - COMPLETED SUICIDE [None]
  - MULTIPLE DRUG OVERDOSE [None]
